FAERS Safety Report 10180137 (Version 1)
Quarter: 2014Q2

REPORT INFORMATION
  Report Type: Spontaneous
  Country: US (occurrence: US)
  Receive Date: 20140519
  Receipt Date: 20140519
  Transmission Date: 20141212
  Serious: No
  Sender: FDA-Public Use
  Company Number: US-AMGEN INC.-USASP2013078343

PATIENT
  Sex: Female

DRUGS (7)
  1. PROLIA [Suspect]
     Indication: OSTEOPOROSIS POSTMENOPAUSAL
     Dosage: UNK
     Route: 065
     Dates: start: 2011
  2. TOPROL [Concomitant]
  3. VALSARTAN [Concomitant]
  4. POTASSIUM CHLORIDE [Concomitant]
  5. LEVOTHYROXINE [Concomitant]
  6. CALCIUM WITH VITAMIN D             /00944201/ [Concomitant]
     Dosage: 600 MG, 2 DAILY
  7. CENTRUM SILVER                     /02363801/ [Concomitant]
     Dosage: UNK, 1 A DAY

REACTIONS (4)
  - Musculoskeletal stiffness [Unknown]
  - Pain [Unknown]
  - Back pain [Unknown]
  - Fatigue [Unknown]
